FAERS Safety Report 16335233 (Version 1)
Quarter: 2019Q2

REPORT INFORMATION
  Report Type: Spontaneous
  Country: NG (occurrence: NG)
  Receive Date: 20190521
  Receipt Date: 20190521
  Transmission Date: 20190711
  Serious: Yes (Hospitalization, Other)
  Sender: FDA-Public Use
  Company Number: NG-IPCA LABORATORIES LIMITED-IPC-2019-NG-000604

PATIENT

DRUGS (3)
  1. TRAMADOL. [Suspect]
     Active Substance: TRAMADOL
     Indication: FEELING OF RELAXATION
  2. TRAMADOL. [Suspect]
     Active Substance: TRAMADOL
     Indication: MEMORY IMPAIRMENT
     Dosage: 800 MG, UNK
     Route: 065
  3. TRAMADOL. [Suspect]
     Active Substance: TRAMADOL
     Indication: OVERCONFIDENCE

REACTIONS (4)
  - Incoherent [Recovered/Resolved]
  - Syncope [Recovered/Resolved]
  - Intentional product misuse [Unknown]
  - Depressed level of consciousness [Recovered/Resolved]
